FAERS Safety Report 17120291 (Version 1)
Quarter: 2019Q4

REPORT INFORMATION
  Report Type: Spontaneous
  Country: CN (occurrence: CN)
  Receive Date: 20191206
  Receipt Date: 20191206
  Transmission Date: 20200122
  Serious: Yes (Other)
  Sender: FDA-Public Use
  Company Number: CN-ASTELLAS-2019US048211

PATIENT
  Age: 32 Month
  Sex: Female

DRUGS (1)
  1. VESICARE [Suspect]
     Active Substance: SOLIFENACIN SUCCINATE
     Indication: CYSTITIS
     Dosage: 1.25 MG, ONCE DAILY (A QUARTER OF A TABLET A DAY)
     Route: 048

REACTIONS (6)
  - Product use issue [Unknown]
  - Epilepsy [Unknown]
  - Tic [Unknown]
  - Product use in unapproved indication [Unknown]
  - Wrong technique in product usage process [Unknown]
  - Intentional product misuse [Unknown]
